FAERS Safety Report 8901176 (Version 1)
Quarter: 2012Q4

REPORT INFORMATION
  Report Type: Report from Study
  Country: ES (occurrence: ES)
  Receive Date: 20121108
  Receipt Date: 20121108
  Transmission Date: 20130627
  Serious: Yes (Hospitalization)
  Sender: FDA-Public Use
  Company Number: ES-ABBOTT-12P-144-1003430-00

PATIENT
  Sex: Male
  Weight: 95 kg

DRUGS (2)
  1. HUMIRA [Suspect]
     Indication: PSORIASIS
     Route: 058
     Dates: start: 20101024
  2. NEOTIGASON [Concomitant]
     Indication: PSORIASIS
     Dates: start: 20120120, end: 20120301

REACTIONS (4)
  - Dermatitis exfoliative [Recovered/Resolved]
  - Psoriasis [Recovered/Resolved]
  - Cardiac failure [Recovered/Resolved]
  - Oxygen consumption increased [Recovered/Resolved]
